FAERS Safety Report 4809433-2 (Version None)
Quarter: 2005Q4

REPORT INFORMATION
  Report Type: 
  Country: None (occurrence: None)
  Receive Date: 20051018
  Receipt Date: 20051004
  Transmission Date: 20060501
  Serious: Yes (Other)
  Sender: FDA-Public Use
  Company Number: THYM-10747

PATIENT
  Sex: Female

DRUGS (1)
  1. THYMOGLOBULINE [Suspect]
     Indication: BONE MARROW TRANSPLANT
     Dosage: 1 MG/KG IV
     Route: 042
     Dates: start: 20051003

REACTIONS (4)
  - ALANINE AMINOTRANSFERASE INCREASED [None]
  - ASPARTATE AMINOTRANSFERASE INCREASED [None]
  - BLOOD ALKALINE PHOSPHATASE INCREASED [None]
  - BLOOD LACTATE DEHYDROGENASE INCREASED [None]
